FAERS Safety Report 5932808-5 (Version None)
Quarter: 2008Q4

REPORT INFORMATION
  Report Type: 
  Country: None (occurrence: None)
  Receive Date: 20081028
  Receipt Date: 20081023
  Transmission Date: 20090506
  Serious: Yes (Other)
  Sender: FDA-Public Use
  Company Number: B0543827A

PATIENT
  Age: 68 Year
  Sex: Male

DRUGS (3)
  1. AUGMENTIN '125' [Suspect]
     Indication: DRUG USE FOR UNKNOWN INDICATION
     Dosage: 1.2G PER DAY
     Route: 042
     Dates: start: 20080826, end: 20080826
  2. TACHIPIRINA [Suspect]
     Indication: PYREXIA
     Dosage: 500MG PER DAY
     Route: 048
     Dates: start: 20080826, end: 20080826
  3. DIALYSIS [Concomitant]
     Indication: DRUG USE FOR UNKNOWN INDICATION
     Route: 065

REACTIONS (7)
  - COLD SWEAT [None]
  - CONTUSION [None]
  - FALL [None]
  - LACERATION [None]
  - LOSS OF CONSCIOUSNESS [None]
  - SKIN LESION [None]
  - SUFFOCATION FEELING [None]
